FAERS Safety Report 21872869 (Version 1)
Quarter: 2023Q1

REPORT INFORMATION
  Report Type: Spontaneous
  Country: US (occurrence: US)
  Receive Date: 20230117
  Receipt Date: 20230117
  Transmission Date: 20230417
  Serious: Yes (Death, Hospitalization)
  Sender: FDA-Public Use
  Company Number: US-BAYER-2023A002830

PATIENT
  Age: 74 Year
  Sex: Male

DRUGS (11)
  1. ASPIRIN [Suspect]
     Active Substance: ASPIRIN
     Dosage: UNK
     Route: 048
  2. ACETAMINOPHEN [Suspect]
     Active Substance: ACETAMINOPHEN
  3. METOPROLOL [Suspect]
     Active Substance: METOPROLOL
  4. ROSUVASTATIN [Suspect]
     Active Substance: ROSUVASTATIN
  5. FUROSEMIDE [Suspect]
     Active Substance: FUROSEMIDE
  6. TAMSULOSIN [Suspect]
     Active Substance: TAMSULOSIN
  7. CLOPIDOGREL [Suspect]
     Active Substance: CLOPIDOGREL BISULFATE
  8. UNSPECIFIED INGREDIENT [Suspect]
     Active Substance: UNSPECIFIED INGREDIENT
  9. SODIUM HYPOCHLORITE [Suspect]
     Active Substance: SODIUM HYPOCHLORITE
  10. ALCOHOL [Suspect]
     Active Substance: ALCOHOL
  11. CLEANSER [Suspect]
     Active Substance: SALICYLIC ACID

REACTIONS (3)
  - Completed suicide [Fatal]
  - Toxicity to various agents [Fatal]
  - Intentional overdose [Fatal]
